FAERS Safety Report 17031692 (Version 1)
Quarter: 2019Q4

REPORT INFORMATION
  Report Type: Spontaneous
  Country: US (occurrence: US)
  Receive Date: 20191113
  Receipt Date: 20191113
  Transmission Date: 20200122
  Serious: Yes (Death, Hospitalization)
  Sender: FDA-Public Use
  Company Number: None

PATIENT
  Age: 32 Year
  Sex: Male
  Weight: 69.75 kg

DRUGS (4)
  1. LOPERAMIDE [Suspect]
     Active Substance: LOPERAMIDE
     Indication: DRUG DEPENDENCE
     Dosage: ?          QUANTITY:1 TABLET(S);OTHER FREQUENCY:UNK;?
     Route: 048
     Dates: start: 20170101, end: 20190511
  2. GABAPENTIN. [Concomitant]
     Active Substance: GABAPENTIN
  3. PROZAC [Concomitant]
     Active Substance: FLUOXETINE HYDROCHLORIDE
  4. SEROQUEL [Concomitant]
     Active Substance: QUETIAPINE FUMARATE

REACTIONS (3)
  - Aspiration [None]
  - Alcohol abuse [None]
  - Drug abuse [None]

NARRATIVE: CASE EVENT DATE: 20190511
